FAERS Safety Report 9046217 (Version 1)
Quarter: 2013Q1

REPORT INFORMATION
  Report Type: Spontaneous
  Country: JP (occurrence: JP)
  Receive Date: 20130201
  Receipt Date: 20130201
  Transmission Date: 20140127
  Serious: No
  Sender: FDA-Public Use
  Company Number: PHHY2013JP009221

PATIENT
  Age: 30 Year
  Sex: Female

DRUGS (2)
  1. TASIGNA [Suspect]
     Indication: CHRONIC MYELOID LEUKAEMIA
     Dosage: 400 MG, DAILY
     Route: 048
     Dates: start: 201203
  2. TASIGNA [Suspect]
     Dosage: 400 MG, DAILY
     Route: 048

REACTIONS (2)
  - Blood bilirubin increased [Recovered/Resolved]
  - Rash [Recovered/Resolved]
